FAERS Safety Report 13332773 (Version 1)
Quarter: 2017Q1

REPORT INFORMATION
  Report Type: Report from Study
  Country: DE (occurrence: DE)
  Receive Date: 20170314
  Receipt Date: 20170314
  Transmission Date: 20170428
  Serious: Yes (Life-Threatening, Hospitalization, Other)
  Sender: FDA-Public Use
  Company Number: DE-ROCHE-1904688

PATIENT
  Age: 54 Year
  Sex: Female

DRUGS (2)
  1. TRAMAL [Concomitant]
     Active Substance: TRAMADOL
     Dosage: FREQUENCY TIME: AS REQUIRED
     Route: 065
  2. TOCILIZUMAB [Suspect]
     Active Substance: TOCILIZUMAB
     Indication: RHEUMATOID ARTHRITIS
     Dosage: TOTAL MONTHLY DOSE 648 MG
     Route: 058
     Dates: start: 20150304

REACTIONS (2)
  - Urosepsis [Recovered/Resolved]
  - Adrenocortical insufficiency acute [Not Recovered/Not Resolved]

NARRATIVE: CASE EVENT DATE: 20170101
